FAERS Safety Report 22114667 (Version 1)
Quarter: 2023Q1

REPORT INFORMATION
  Report Type: Spontaneous
  Country: US (occurrence: None)
  Receive Date: 20230317
  Receipt Date: 20230317
  Transmission Date: 20230418
  Serious: No
  Sender: FDA-Public Use
  Company Number: None

PATIENT

DRUGS (2)
  1. OTEZLA [Suspect]
     Active Substance: APREMILAST
  2. COSMETICS [Suspect]
     Active Substance: COSMETICS

REACTIONS (4)
  - Suicidal ideation [None]
  - Therapy change [None]
  - Condition aggravated [None]
  - Headache [None]
